FAERS Safety Report 4723549-0 (Version None)
Quarter: 2005Q3

REPORT INFORMATION
  Report Type: 
  Country: None (occurrence: None)
  Receive Date: 20050720
  Receipt Date: 20050720
  Transmission Date: 20060218
  Serious: Yes (Hospitalization)
  Sender: FDA-Public Use
  Company Number: None

PATIENT
  Age: 62 Year
  Sex: Male
  Weight: 77.5651 kg

DRUGS (5)
  1. LISINOPRIL [Suspect]
     Indication: HYPERTENSION
     Dosage: 10MG PO QD
     Route: 048
     Dates: start: 20050209, end: 20050213
  2. VIT C [Concomitant]
  3. COMBIVENT [Concomitant]
  4. DIAZOSIN [Concomitant]
  5. SILDENAFIL [Concomitant]

REACTIONS (1)
  - ANGIONEUROTIC OEDEMA [None]
